FAERS Safety Report 26052409 (Version 1)
Quarter: 2025Q4

REPORT INFORMATION
  Report Type: Spontaneous
  Country: GB (occurrence: GB)
  Receive Date: 20251117
  Receipt Date: 20251117
  Transmission Date: 20260118
  Serious: Yes (Other)
  Sender: HIKMA
  Company Number: GB-MHRA-TPP11438397C1316143YC1762170941677

PATIENT
  Age: 26 Year
  Sex: Female
  Weight: 81 kg

DRUGS (9)
  1. FLUCONAZOLE [Suspect]
     Active Substance: FLUCONAZOLE
     Indication: Ill-defined disorder
     Dosage: 1 DOSAGE FORM, QD, UP TO 4 WEEKS
     Route: 065
     Dates: start: 20251030
  2. BETNOVATE [Concomitant]
     Active Substance: BETAMETHASONE
     Indication: Ill-defined disorder
     Dosage: USE AT NIGHT
     Route: 065
     Dates: start: 20250904, end: 20251002
  3. CLOBETASOL PROPIONATE [Concomitant]
     Active Substance: CLOBETASOL PROPIONATE
     Indication: Ill-defined disorder
     Dosage: APPLY ONCE A DAY
     Route: 065
     Dates: start: 20251030
  4. DICLOFENAC SODIUM [Concomitant]
     Active Substance: DICLOFENAC SODIUM
     Indication: Ill-defined disorder
     Dosage: INSERT ONE AT NIGHT FOR 5 DAYS PER MONTH
     Route: 048
     Dates: start: 20231002
  5. HYDROMOL [SODIUM PIDOLATE] [Concomitant]
     Indication: Ill-defined disorder
     Dosage: USE AS SOAP SUBST AND AS LEAVE ON MOISTURISER
     Route: 065
     Dates: start: 20250904, end: 20251002
  6. NAPROXEN [Concomitant]
     Active Substance: NAPROXEN
     Indication: Ill-defined disorder
     Dosage: 1 DOSAGE FORM, TID (WITH FOOD WHEN REQUIRED)
     Route: 065
     Dates: start: 20250102
  7. ACETAMINOPHEN\CODEINE PHOSPHATE [Concomitant]
     Active Substance: ACETAMINOPHEN\CODEINE PHOSPHATE
     Indication: Ill-defined disorder
     Dosage: 2 DOSAGE FORM, QID (WHEN REQUIRED)
     Route: 065
     Dates: start: 20250102
  8. ZERODERM [Concomitant]
     Indication: Ill-defined disorder
     Dosage: USE AS DIRECTED
     Route: 065
     Dates: start: 20251010
  9. ESTRADIOL\NOMEGESTROL ACETATE [Concomitant]
     Active Substance: ESTRADIOL\NOMEGESTROL ACETATE
     Indication: Ill-defined disorder
     Dosage: TAKE AS DIRECTED BY GYNAE
     Route: 065
     Dates: start: 20231002

REACTIONS (6)
  - Stomatitis [Unknown]
  - Blister [Recovering/Resolving]
  - Rash erythematous [Recovering/Resolving]
  - Swollen tongue [Recovering/Resolving]
  - Lip pain [Unknown]
  - Skin lesion [Unknown]

NARRATIVE: CASE EVENT DATE: 20251101
